FAERS Safety Report 23953868 (Version 1)
Quarter: 2024Q2

REPORT INFORMATION
  Report Type: Spontaneous
  Country: GB (occurrence: GB)
  Receive Date: 20240609
  Receipt Date: 20240609
  Transmission Date: 20240715
  Serious: Yes (Hospitalization, Disabling, Other)
  Sender: FDA-Public Use
  Company Number: None

PATIENT
  Sex: Male
  Weight: 68 kg

DRUGS (1)
  1. FINASTERIDE [Suspect]
     Active Substance: FINASTERIDE
     Indication: Product used for unknown indication

REACTIONS (35)
  - Panic attack [Not Recovered/Not Resolved]
  - Anhedonia [Not Recovered/Not Resolved]
  - Derealisation [Not Recovered/Not Resolved]
  - Brain fog [Not Recovered/Not Resolved]
  - Muscle spasms [Not Recovered/Not Resolved]
  - Dry eye [Not Recovered/Not Resolved]
  - Dry skin [Not Recovered/Not Resolved]
  - Feeling cold [Not Recovered/Not Resolved]
  - Anhidrosis [Not Recovered/Not Resolved]
  - Constipation [Recovering/Resolving]
  - Diarrhoea [Recovering/Resolving]
  - Appendicitis [Recovered/Resolved]
  - Tinnitus [Not Recovered/Not Resolved]
  - Memory impairment [Not Recovered/Not Resolved]
  - Muscular weakness [Not Recovered/Not Resolved]
  - Fatigue [Not Recovered/Not Resolved]
  - Personality change [Not Recovered/Not Resolved]
  - Male genital atrophy [Not Recovered/Not Resolved]
  - Partner stress [Not Recovered/Not Resolved]
  - Sexual relationship change [Not Recovered/Not Resolved]
  - Orgasmic sensation decreased [Not Recovered/Not Resolved]
  - Genital hypoaesthesia [Not Recovered/Not Resolved]
  - Testicular atrophy [Not Recovered/Not Resolved]
  - Decreased interest [Not Recovered/Not Resolved]
  - Apathy [Not Recovered/Not Resolved]
  - Psychiatric symptom [Not Recovered/Not Resolved]
  - Skin atrophy [Not Recovered/Not Resolved]
  - Bone pain [Not Recovered/Not Resolved]
  - Pollakiuria [Not Recovered/Not Resolved]
  - Urinary retention [Not Recovered/Not Resolved]
  - Loss of libido [Not Recovered/Not Resolved]
  - Ejaculation disorder [Not Recovered/Not Resolved]
  - Organic erectile dysfunction [Not Recovered/Not Resolved]
  - Ejaculation disorder [Not Recovered/Not Resolved]
  - Erectile dysfunction [Not Recovered/Not Resolved]
